FAERS Safety Report 4596059-1 (Version None)
Quarter: 2005Q1

REPORT INFORMATION
  Report Type: 
  Country: None (occurrence: None)
  Receive Date: 20050225
  Receipt Date: 20050211
  Transmission Date: 20050727
  Serious: Yes (Hospitalization)
  Sender: FDA-Public Use
  Company Number: 2005UW02827

PATIENT
  Sex: Female

DRUGS (1)
  1. CRESTOR [Suspect]
     Dates: start: 20040701, end: 20041101

REACTIONS (3)
  - BLOOD TEST ABNORMAL [None]
  - MYOCARDIAL INFARCTION [None]
  - PNEUMONIA [None]
